FAERS Safety Report 22648246 (Version 1)
Quarter: 2023Q2

REPORT INFORMATION
  Report Type: Spontaneous
  Country: FR (occurrence: FR)
  Receive Date: 20230628
  Receipt Date: 20230628
  Transmission Date: 20230722
  Serious: Yes (Other)
  Sender: FDA-Public Use
  Company Number: None

PATIENT
  Age: 48 Year
  Sex: Female
  Weight: 115 kg

DRUGS (6)
  1. MESTINON [Suspect]
     Active Substance: PYRIDOSTIGMINE BROMIDE
     Indication: Muscular weakness
     Route: 048
     Dates: start: 202106
  2. TENOFOVIR DISOPROXIL SUCCINATE [Suspect]
     Active Substance: TENOFOVIR DISOPROXIL SUCCINATE
     Indication: Prophylaxis
     Route: 048
     Dates: start: 20220324
  3. AZATHIOPRINE SODIUM [Suspect]
     Active Substance: AZATHIOPRINE SODIUM
     Indication: Muscular weakness
     Route: 048
     Dates: start: 202106
  4. PREDNISONE [Suspect]
     Active Substance: PREDNISONE
     Indication: Muscular weakness
     Route: 048
     Dates: start: 202106
  5. RITUXIMAB [Suspect]
     Active Substance: RITUXIMAB
     Indication: Muscular weakness
     Dosage: RITUXIMAB ((MAMMIFERE/HAMSTER/CELLULES CHO))
     Route: 042
     Dates: start: 20220414, end: 20221011
  6. CANDESARTAN CILEXETIL [Concomitant]
     Active Substance: CANDESARTAN CILEXETIL
     Indication: Product used for unknown indication
     Route: 048
     Dates: start: 202104, end: 20230115

REACTIONS (1)
  - Abortion spontaneous [Recovered/Resolved]

NARRATIVE: CASE EVENT DATE: 20230127
